FAERS Safety Report 7851847 (Version 3)
Quarter: 2014Q1

REPORT INFORMATION
  Report Type: Spontaneous
  Country: US (occurrence: US)
  Receive Date: 20110311
  Receipt Date: 20140123
  Transmission Date: 20141002
  Serious: Yes (Other)
  Sender: FDA-Public Use
  Company Number: US-BAYER-2011-021754

PATIENT
  Age: 21 Year
  Sex: Female
  Weight: 91 kg

DRUGS (6)
  1. YAZ [Suspect]
     Indication: CONTRACEPTION
     Dosage: UNK
     Dates: start: 2001, end: 2002
  2. YAZ [Suspect]
     Indication: PREMENSTRUAL SYNDROME
  3. YASMIN [Suspect]
     Indication: CONTRACEPTION
     Dosage: UNK
     Dates: start: 2001, end: 2002
  4. YASMIN [Suspect]
     Indication: PREMENSTRUAL SYNDROME
  5. NEXIUM [Concomitant]
     Dosage: 40 MG, QD
     Dates: start: 20030904
  6. PAXIL [Concomitant]
     Dosage: 25 MG, QD
     Dates: start: 20030904

REACTIONS (3)
  - Cholecystectomy [None]
  - Cholecystitis chronic [None]
  - Biliary dyskinesia [None]
